FAERS Safety Report 8268089-X (Version None)
Quarter: 2012Q2

REPORT INFORMATION
  Report Type: 
  Country: None (occurrence: None)
  Receive Date: 20120409
  Receipt Date: 20120403
  Transmission Date: 20120825
  Serious: Yes (Other)
  Sender: FDA-Public Use
  Company Number: US-AMGEN-USASP2011057260

PATIENT
  Age: 57 Year
  Sex: Female

DRUGS (2)
  1. ENBREL [Suspect]
     Indication: RHEUMATOID ARTHRITIS
     Dosage: 50 MG, QWK
     Dates: start: 20110530, end: 20111017
  2. METHOTREXATE [Concomitant]
     Dosage: UNK

REACTIONS (8)
  - LETHARGY [None]
  - PANCYTOPENIA [None]
  - HAEMATOCRIT ABNORMAL [None]
  - HAEMATOLOGICAL MALIGNANCY [None]
  - RED BLOOD CELL SEDIMENTATION RATE ABNORMAL [None]
  - PLATELET COUNT ABNORMAL [None]
  - WHITE BLOOD CELL COUNT DECREASED [None]
  - PYREXIA [None]
